FAERS Safety Report 8080572-9 (Version None)
Quarter: 2012Q1

REPORT INFORMATION
  Report Type: 
  Country: None (occurrence: None)
  Receive Date: 20120130
  Receipt Date: 20120119
  Transmission Date: 20120608
  Serious: Yes (Hospitalization)
  Sender: FDA-Public Use
  Company Number: CH-JNJFOC-20120109178

PATIENT
  Age: 59 Year
  Sex: Male
  Weight: 90.1 kg

DRUGS (12)
  1. NOVALGIN [Concomitant]
     Route: 048
  2. LISINOPRIL [Concomitant]
     Route: 048
  3. PREDNISONE TAB [Concomitant]
     Route: 048
     Dates: start: 20090801
  4. NORVASC [Concomitant]
     Route: 048
  5. PREDNISONE TAB [Concomitant]
     Indication: ANKYLOSING SPONDYLITIS
     Route: 048
  6. ESOMEPRAZOLE SODIUM [Concomitant]
     Route: 048
  7. OXYCONTIN [Concomitant]
     Route: 048
  8. METHOTREXATE SODIUM [Concomitant]
     Indication: ANKYLOSING SPONDYLITIS
     Route: 058
     Dates: start: 20090801
  9. ATENOLOL [Concomitant]
     Route: 048
  10. HYDROCHLOROTHIAZIDE [Concomitant]
     Route: 048
  11. REMICADE [Suspect]
     Indication: ANKYLOSING SPONDYLITIS
     Route: 042
     Dates: start: 20100101, end: 20111021
  12. FOSAMAX [Concomitant]
     Route: 065

REACTIONS (3)
  - MYOSITIS [None]
  - MUSCULAR WEAKNESS [None]
  - ASTHENIA [None]
